FAERS Safety Report 19787166 (Version 1)
Quarter: 2021Q3

REPORT INFORMATION
  Report Type: Spontaneous
  Country: US (occurrence: US)
  Receive Date: 20210903
  Receipt Date: 20210903
  Transmission Date: 20211014
  Serious: Yes (Other)
  Sender: FDA-Public Use
  Company Number: US-ALLERGAN-2131005US

PATIENT
  Sex: Female

DRUGS (4)
  1. BOTOX [Suspect]
     Active Substance: ONABOTULINUMTOXINA
     Dosage: UNK UNK, SINGLE
     Dates: start: 20210722, end: 20210722
  2. SYNTHROID [Concomitant]
     Active Substance: LEVOTHYROXINE SODIUM
     Dosage: UNK
  3. BOTOX [Suspect]
     Active Substance: ONABOTULINUMTOXINA
     Dosage: UNK UNK, SINGLE
     Dates: start: 20210722, end: 20210722
  4. BOTOX [Suspect]
     Active Substance: ONABOTULINUMTOXINA
     Indication: TEMPOROMANDIBULAR JOINT SYNDROME
     Dosage: UNK UNK, SINGLE
     Dates: start: 20210722, end: 20210722

REACTIONS (9)
  - Dysphagia [Not Recovered/Not Resolved]
  - Off label use [Unknown]
  - Feeding disorder [Not Recovered/Not Resolved]
  - Injection site urticaria [Recovered/Resolved]
  - Drug ineffective for unapproved indication [Unknown]
  - Dry mouth [Not Recovered/Not Resolved]
  - Neoplasm malignant [Unknown]
  - Speech disorder [Not Recovered/Not Resolved]
  - Injection site pruritus [Recovered/Resolved]

NARRATIVE: CASE EVENT DATE: 20210722
